FAERS Safety Report 23305537 (Version 1)
Quarter: 2023Q4

REPORT INFORMATION
  Report Type: Spontaneous
  Country: US (occurrence: US)
  Receive Date: 20231218
  Receipt Date: 20231218
  Transmission Date: 20240109
  Serious: Yes (Other)
  Sender: FDA-Public Use
  Company Number: US-BRISTOL-MYERS SQUIBB COMPANY-2023-177485

PATIENT
  Age: 73 Year
  Sex: Male
  Weight: 65.77 kg

DRUGS (1)
  1. POMALYST [Suspect]
     Active Substance: POMALIDOMIDE
     Indication: Plasma cell myeloma
     Dosage: 2WKSON,2 OFF
     Route: 048
     Dates: end: 20231204

REACTIONS (3)
  - Acute kidney injury [Recovering/Resolving]
  - Off label use [Unknown]
  - Functional gastrointestinal disorder [Recovering/Resolving]
